FAERS Safety Report 23039473 (Version 1)
Quarter: 2023Q4

REPORT INFORMATION
  Report Type: Spontaneous
  Country: DE (occurrence: DE)
  Receive Date: 20231006
  Receipt Date: 20231006
  Transmission Date: 20240109
  Serious: Yes (Other)
  Sender: FDA-Public Use
  Company Number: DE-PFIZER INC-PV202300034954

PATIENT
  Sex: Male

DRUGS (1)
  1. VYNDAQEL [Suspect]
     Active Substance: TAFAMIDIS MEGLUMINE
     Dosage: UNK

REACTIONS (4)
  - Ascites [Unknown]
  - Gamma-glutamyltransferase increased [Unknown]
  - Condition aggravated [Unknown]
  - Hepatic enzyme increased [Not Recovered/Not Resolved]
